FAERS Safety Report 19810392 (Version 3)
Quarter: 2021Q4

REPORT INFORMATION
  Report Type: Spontaneous
  Country: US (occurrence: US)
  Receive Date: 20210909
  Receipt Date: 20211101
  Transmission Date: 20220303
  Serious: Yes (Hospitalization, Other)
  Sender: FDA-Public Use
  Company Number: US-BIOGEN-2021BI01046759

PATIENT
  Age: 62 Year
  Sex: Female
  Weight: 56.568 kg

DRUGS (34)
  1. TYSABRI [Suspect]
     Active Substance: NATALIZUMAB
     Indication: Relapsing-remitting multiple sclerosis
     Route: 065
     Dates: start: 20120725
  2. TYSABRI [Suspect]
     Active Substance: NATALIZUMAB
     Dosage: TYSABRI 300MG/15ML INTRAVENOUS CONCEBTRATE (NATALIZUMAB) IV INFUSION EVERY 31-32 DAYS
     Route: 042
     Dates: start: 2012
  3. TYSABRI [Suspect]
     Active Substance: NATALIZUMAB
     Route: 065
     Dates: start: 20160825
  4. DALFAMPRIDINE [Suspect]
     Active Substance: DALFAMPRIDINE
     Indication: Gait disturbance
     Dosage: DALFAMPRIDINE ER 10MG ORAL TABLET EXTENDED RELEASE 12 HOUR (DALFAMPRIDINE)
     Route: 048
  5. DALFAMPRIDINE [Suspect]
     Active Substance: DALFAMPRIDINE
     Dosage: DALFAMPRIDINE ER 10MG ORAL TABLET EXTENDED RELEASE 12 HOUR (DALFAMPRIDINE)
     Route: 048
     Dates: start: 201905, end: 20190605
  6. AMPYRA [Suspect]
     Active Substance: DALFAMPRIDINE
     Indication: Gait disturbance
     Route: 048
     Dates: start: 201708, end: 201905
  7. PRIMIDONE [Concomitant]
     Active Substance: PRIMIDONE
     Indication: Raynaud^s phenomenon
     Dosage: PRIMIDONE 50MG ORAL TABLET (PRIMIDONE) 2 PO QAM
     Route: 048
  8. MELATONIN [Concomitant]
     Active Substance: MELATONIN
     Indication: Product used for unknown indication
     Dosage: MELATONIN 3MG ORAL TABLET (MELATONIN) 1 PO QHS
     Route: 048
  9. Caltrate D3 [Concomitant]
     Indication: Product used for unknown indication
     Dosage: CALTRATE 600+D3 SOFT 600-800MG UNIT ORAL TABLET CHEWABLE (CALCIUM CARB-CHOLECALCIFEROL) 1 PO QD
     Route: 048
  10. CVS FISH OIL [Concomitant]
     Indication: Product used for unknown indication
     Dosage: CVS FISH OIL 1000MG ORAL CAPSULE (OMEGA-3 FATTY ACIDS) 1 PO QD
     Route: 048
  11. GABAPENTIN [Concomitant]
     Active Substance: GABAPENTIN
     Indication: Product used for unknown indication
     Route: 048
  12. GABAPENTIN [Concomitant]
     Active Substance: GABAPENTIN
     Route: 048
  13. MELOXICAM [Concomitant]
     Active Substance: MELOXICAM
     Indication: Product used for unknown indication
     Route: 048
  14. VITAMIN B12 [Concomitant]
     Active Substance: CYANOCOBALAMIN
     Indication: Product used for unknown indication
     Route: 048
  15. BIOTIN [Concomitant]
     Active Substance: BIOTIN
     Indication: Product used for unknown indication
     Route: 048
  16. METAMUCIL [Concomitant]
     Active Substance: PLANTAGO SEED
     Indication: Product used for unknown indication
     Dosage: METAMUCIL CAPS (PSYLLIUM) 1 PO HS
     Route: 048
  17. VITAMIN D3 [Concomitant]
     Active Substance: CHOLECALCIFEROL
     Indication: Product used for unknown indication
     Route: 048
  18. BUPROPION HYDROCHLORIDE [Concomitant]
     Active Substance: BUPROPION HYDROCHLORIDE
     Indication: Product used for unknown indication
     Dosage: BUPROPION HCL ER (XL) 300 MG ORAL TABLET EXTENDED RELEASE 24 (BUPRROPION HCL) 1 PO QAM
     Route: 048
  19. DOXYCYCLINE HYCLATE [Concomitant]
     Active Substance: DOXYCYCLINE HYCLATE
     Indication: Product used for unknown indication
     Route: 048
  20. PROPRANOLOL [Concomitant]
     Active Substance: PROPRANOLOL HYDROCHLORIDE
     Indication: Essential tremor
     Route: 065
  21. TIZANIDINE [Concomitant]
     Active Substance: TIZANIDINE
     Indication: Muscle spasms
     Route: 065
  22. NITROFURANTOIN [Concomitant]
     Active Substance: NITROFURANTOIN
     Indication: Micturition urgency
     Route: 065
  23. NUVIGIL [Concomitant]
     Active Substance: ARMODAFINIL
     Indication: Fatigue
     Route: 065
  24. CETIRIZINE HYDROCHLORIDE [Concomitant]
     Active Substance: CETIRIZINE HYDROCHLORIDE
     Indication: Product used for unknown indication
     Route: 048
  25. RETIN-A [Concomitant]
     Active Substance: TRETINOIN
     Indication: Product used for unknown indication
     Route: 048
  26. FLOMAX [Concomitant]
     Active Substance: TAMSULOSIN HYDROCHLORIDE
     Indication: Neurogenic bladder
     Route: 048
  27. GLUCOSAMINE [Concomitant]
     Active Substance: GLUCOSAMINE
     Indication: Product used for unknown indication
     Route: 048
  28. INDERAL [Concomitant]
     Active Substance: PROPRANOLOL HYDROCHLORIDE
     Indication: Tremor
     Route: 048
  29. PLETAL [Concomitant]
     Active Substance: CILOSTAZOL
     Indication: Raynaud^s phenomenon
     Route: 048
  30. Move Free Joint Health [Concomitant]
     Indication: Product used for unknown indication
     Dosage: 750MG-100MG-1.65MG-108 MG
     Route: 048
     Dates: start: 20170803
  31. OXYCODONE [Concomitant]
     Active Substance: OXYCODONE
     Indication: Product used for unknown indication
     Route: 048
  32. KLS [Concomitant]
     Indication: Product used for unknown indication
     Route: 048
  33. DOCUSATE SODIUM [Concomitant]
     Active Substance: DOCUSATE SODIUM
     Indication: Product used for unknown indication
     Dosage: HS
     Route: 048
     Dates: start: 20180320
  34. DICLOFENAC SODIUM [Concomitant]
     Active Substance: DICLOFENAC SODIUM
     Indication: Product used for unknown indication
     Route: 065

REACTIONS (6)
  - Spondylitic myelopathy [Not Recovered/Not Resolved]
  - Intervertebral disc degeneration [Unknown]
  - Intervertebral disc protrusion [Unknown]
  - Central nervous system lesion [Unknown]
  - Aspartate aminotransferase increased [Unknown]
  - Alanine aminotransferase increased [Unknown]

NARRATIVE: CASE EVENT DATE: 20210421
